FAERS Safety Report 16203557 (Version 2)
Quarter: 2019Q2

REPORT INFORMATION
  Report Type: Spontaneous
  Country: CZ (occurrence: CZ)
  Receive Date: 20190416
  Receipt Date: 20190611
  Transmission Date: 20190711
  Serious: Yes (Hospitalization)
  Sender: FDA-Public Use
  Company Number: CZ-PFIZER INC-2019152538

PATIENT
  Age: 36 Year
  Sex: Female

DRUGS (6)
  1. DENOSUMAB [Suspect]
     Active Substance: DENOSUMAB
     Indication: BREAST CANCER METASTATIC
     Dosage: UNK
     Route: 065
  2. DOCETAXEL. [Suspect]
     Active Substance: DOCETAXEL
     Indication: BREAST CANCER METASTATIC
     Dosage: UNK
     Route: 065
     Dates: start: 201411
  3. TRASTUZUMAB. [Suspect]
     Active Substance: TRASTUZUMAB
     Indication: BREAST CANCER METASTATIC
     Dosage: UNK
     Route: 065
     Dates: start: 201411
  4. PERTUZUMAB. [Suspect]
     Active Substance: PERTUZUMAB
     Indication: BREAST CANCER METASTATIC
     Dosage: UNK
     Route: 065
     Dates: start: 201411
  5. KADCYLA [Suspect]
     Active Substance: ADO-TRASTUZUMAB EMTANSINE
     Indication: BREAST CANCER METASTATIC
     Dosage: UNK
     Route: 065
  6. TAMOXIFEN [Suspect]
     Active Substance: TAMOXIFEN
     Indication: BREAST CANCER METASTATIC
     Dosage: UNK
     Route: 065

REACTIONS (4)
  - Brain neoplasm [Unknown]
  - Second primary malignancy [Unknown]
  - Endometriosis [Unknown]
  - Oestradiol abnormal [Unknown]

NARRATIVE: CASE EVENT DATE: 201606
